FAERS Safety Report 4680140-2 (Version None)
Quarter: 2005Q2

REPORT INFORMATION
  Report Type: 
  Country: None (occurrence: None)
  Receive Date: 20050531
  Receipt Date: 20050523
  Transmission Date: 20051028
  Serious: Yes (Death, Life-Threatening, Hospitalization)
  Sender: FDA-Public Use
  Company Number: 2001-11-0038

PATIENT
  Age: 72 Year
  Sex: Female
  Weight: 68 kg

DRUGS (6)
  1. TEMODAL [Suspect]
     Indication: GLIOBLASTOMA MULTIFORME
     Dosage: 120MG 5D/W ORAL
     Route: 048
     Dates: start: 20010920, end: 20011012
  2. RADIATION THERAPY NO DOSE FORM [Suspect]
     Indication: GLIOBLASTOMA MULTIFORME
     Dosage: 2 GY 5D/W X-RAY THERAPY
     Dates: start: 20010920, end: 20011012
  3. MEDROL [Concomitant]
  4. ZANTAC [Concomitant]
  5. DEPAKENE [Concomitant]
  6. SINTROM [Concomitant]

REACTIONS (5)
  - BONE MARROW DEPRESSION [None]
  - LEUKOPENIA [None]
  - OPPORTUNISTIC INFECTION [None]
  - SEPSIS [None]
  - THROMBOCYTOPENIA [None]
